FAERS Safety Report 9856831 (Version 2)
Quarter: 2014Q1

REPORT INFORMATION
  Report Type: Spontaneous
  Country: US (occurrence: None)
  Receive Date: 20140128
  Receipt Date: 20140207
  Transmission Date: 20141002
  Serious: Yes (Hospitalization)
  Sender: FDA-Public Use
  Company Number: KAD201401-000105

PATIENT
  Age: 54 Year
  Sex: Male

DRUGS (4)
  1. RIBAVIRIN (RIBAVIRIN) [Suspect]
     Indication: CHRONIC HEPATITIS C
     Route: 048
  2. PEGINTERFERON LAMBDA [Suspect]
     Indication: CHRONIC HEPATITIS C
     Route: 058
     Dates: start: 20130809, end: 20131129
  3. DACLATASVIR [Suspect]
     Indication: CHRONIC HEPATITIS C
     Route: 048
  4. AMOXICILLIN/CLAVULANIC ACID [Suspect]
     Indication: CHRONIC HEPATITIS C
     Dates: start: 20131125, end: 20131130

REACTIONS (6)
  - Hepatitis acute [None]
  - White blood cell scan [None]
  - Haemoglobin decreased [None]
  - White blood cell count decreased [None]
  - Prothrombin time prolonged [None]
  - International normalised ratio increased [None]
